FAERS Safety Report 5463527-X (Version None)
Quarter: 2007Q3

REPORT INFORMATION
  Report Type: 
  Country: None (occurrence: None)
  Receive Date: 20070920
  Receipt Date: 20070910
  Transmission Date: 20080115
  Serious: Yes (Other)
  Sender: FDA-Public Use
  Company Number: US-PFIZER INC-2007076123

PATIENT
  Sex: Male
  Weight: 75.9 kg

DRUGS (2)
  1. CHANTIX [Suspect]
     Indication: SMOKING CESSATION THERAPY
  2. ANTIHYPERTENSIVES [Concomitant]

REACTIONS (5)
  - ANOREXIA [None]
  - DISCOMFORT [None]
  - DIZZINESS [None]
  - DYSGEUSIA [None]
  - LUNG NEOPLASM MALIGNANT [None]
